FAERS Safety Report 9199122 (Version 6)
Quarter: 2014Q2

REPORT INFORMATION
  Report Type: Spontaneous
  Country: US (occurrence: US)
  Receive Date: 20130329
  Receipt Date: 20140616
  Transmission Date: 20141212
  Serious: Yes (Other)
  Sender: FDA-Public Use
  Company Number: US-009507513-1303USA013474

PATIENT
  Sex: Male
  Weight: 99.77 kg

DRUGS (3)
  1. PROPECIA [Suspect]
     Indication: ANDROGENETIC ALOPECIA
     Dosage: 1 MG, QD
     Route: 048
     Dates: start: 20070927, end: 201103
  2. FINASTERIDE [Suspect]
     Indication: ALOPECIA
     Dosage: 5 MG, UNK
     Route: 048
     Dates: start: 20110307
  3. PROSCAR [Suspect]
     Indication: ANDROGENETIC ALOPECIA
     Dosage: 5 MG, UNK
     Route: 048

REACTIONS (21)
  - Rotator cuff repair [Unknown]
  - Attention deficit/hyperactivity disorder [Not Recovered/Not Resolved]
  - Anxiety [Unknown]
  - Hypertension [Unknown]
  - Neck mass [Unknown]
  - Pain [Unknown]
  - Arthralgia [Unknown]
  - Neck pain [Unknown]
  - Pollakiuria [Unknown]
  - Cyst [Unknown]
  - Blood calcium abnormal [Unknown]
  - Paraesthesia [Unknown]
  - Adverse drug reaction [Unknown]
  - Stress [Unknown]
  - Somnolence [Unknown]
  - Wrong technique in drug usage process [Unknown]
  - Drug administration error [Unknown]
  - Sexual dysfunction [Not Recovered/Not Resolved]
  - Depression [Not Recovered/Not Resolved]
  - Erectile dysfunction [Unknown]
  - Vasectomy [Unknown]
